FAERS Safety Report 5307762-X (Version None)
Quarter: 2007Q2

REPORT INFORMATION
  Report Type: 
  Country: None (occurrence: None)
  Receive Date: 20070418
  Receipt Date: 20070402
  Transmission Date: 20071010
  Serious: Yes (Other)
  Sender: FDA-Public Use
  Company Number: US-1162615

PATIENT
  Sex: Female

DRUGS (1)
  1. SYSTANE FREE LUBRICANT EYE DROPS EYE DROPS [Suspect]
     Dosage: (OPHTHALMIC)
     Route: 047

REACTIONS (4)
  - ACANTHAMOEBA INFECTION [None]
  - CORNEAL INFECTION [None]
  - CORNEAL TRANSPLANT [None]
  - MORAXELLA INFECTION [None]
